FAERS Safety Report 16612078 (Version 2)
Quarter: 2019Q4

REPORT INFORMATION
  Report Type: Report from Study
  Country: IT (occurrence: IT)
  Receive Date: 20190722
  Receipt Date: 20191024
  Transmission Date: 20200122
  Serious: Yes (Other)
  Sender: FDA-Public Use
  Company Number: PHHY2019IT167768

PATIENT
  Sex: Male

DRUGS (26)
  1. TRAMETINIB [Suspect]
     Active Substance: TRAMETINIB
     Indication: MALIGNANT MELANOMA
     Dosage: 2 OT, UNK
     Route: 065
     Dates: start: 20190121, end: 20190505
  2. TRAMETINIB [Suspect]
     Active Substance: TRAMETINIB
     Dosage: 2 OT
     Route: 065
     Dates: start: 20190606, end: 20190610
  3. ABIRATERONE. [Concomitant]
     Active Substance: ABIRATERONE ACETATE
     Indication: PROSTATE CANCER
     Dosage: 250 OT, UNK
     Route: 048
     Dates: start: 20181106, end: 20190610
  4. DL-LYSINI ACETYLSALICYLAS [Concomitant]
     Active Substance: ASPIRIN DL-LYSINE
     Indication: HYPERTENSION
     Dosage: 75 OT, UNK
     Route: 048
     Dates: start: 20100615
  5. COLECALCIFEROL [Concomitant]
     Active Substance: CHOLECALCIFEROL
     Indication: PROPHYLAXIS
     Dosage: 50 OT, UNK
     Route: 048
     Dates: start: 20190210, end: 20190306
  6. FENTANYL. [Concomitant]
     Active Substance: FENTANYL
     Indication: PAIN
     Dosage: 25 OT, UNK
     Route: 062
     Dates: start: 20190121
  7. COLECALCIFEROL [Concomitant]
     Active Substance: CHOLECALCIFEROL
     Indication: VITAMIN D DEFICIENCY
     Dosage: 10000 OT, UNK
     Route: 048
     Dates: start: 20190307
  8. PARACETAMOLO [Concomitant]
     Active Substance: ACETAMINOPHEN
     Indication: PAIN
     Dosage: 1000 OT, UNK
     Route: 048
     Dates: start: 20190121, end: 20190316
  9. TAFINLAR [Suspect]
     Active Substance: DABRAFENIB MESYLATE
     Indication: MALIGNANT MELANOMA
     Dosage: 300 OT, UNK
     Route: 065
     Dates: start: 20190121, end: 20190505
  10. TAFINLAR [Suspect]
     Active Substance: DABRAFENIB MESYLATE
     Dosage: 300 OT, UNK
     Route: 065
     Dates: start: 20190513, end: 20190623
  11. DENOSUMAB [Concomitant]
     Active Substance: DENOSUMAB
     Indication: METASTASES TO BONE
     Dosage: 120 OT, UNK
     Route: 058
     Dates: start: 20190210
  12. PREGABALIN. [Concomitant]
     Active Substance: PREGABALIN
     Indication: PAIN
     Dosage: 75 OT, UNK
     Route: 048
     Dates: start: 20190121, end: 20190624
  13. PREDNISONE. [Concomitant]
     Active Substance: PREDNISONE
     Dosage: 25 OT, UNK
     Route: 048
     Dates: start: 20190512
  14. DESAMETASONE [Concomitant]
     Active Substance: DEXAMETHASONE
     Indication: PAIN
     Dosage: 4 OT, UNK
     Route: 030
     Dates: start: 20190121, end: 20190512
  15. TRIPTORELINA [Concomitant]
     Indication: PROSTATE CANCER
     Dosage: 3.75 OT, UNK
     Route: 030
     Dates: start: 20181106
  16. FENTANIL [Concomitant]
     Active Substance: FENTANYL
     Indication: PAIN
     Dosage: 100 OT, UNK
     Route: 048
     Dates: start: 20190121, end: 20190210
  17. CALCIUM [Concomitant]
     Active Substance: CALCIUM
     Indication: CALCIUM DEFICIENCY
     Dosage: 1000 OT, UNK
     Route: 048
     Dates: start: 20190210, end: 20190512
  18. PARACETAMOLO [Concomitant]
     Active Substance: ACETAMINOPHEN
     Dosage: 1000 OT, UNK
     Route: 048
     Dates: start: 20190318, end: 20190604
  19. PREDNISONE. [Concomitant]
     Active Substance: PREDNISONE
     Indication: PAIN
     Dosage: 25 OT, UNK
     Route: 048
     Dates: start: 20190506
  20. TRAMETINIB [Suspect]
     Active Substance: TRAMETINIB
     Dosage: 2 OT, UNK
     Route: 065
     Dates: start: 20190513, end: 20190624
  21. TRAMETINIB [Suspect]
     Active Substance: TRAMETINIB
     Dosage: 2 OT
     Route: 065
     Dates: start: 20190506, end: 20190512
  22. COLECALCIFEROL [Concomitant]
     Active Substance: CHOLECALCIFEROL
     Indication: HYPOCALCAEMIA
  23. MANIDIPINA [Concomitant]
     Indication: HYPERTENSION
     Dosage: 1 OT, UNK
     Route: 048
     Dates: start: 20100615
  24. TAFINLAR [Suspect]
     Active Substance: DABRAFENIB MESYLATE
     Dosage: 300 MG, OT
     Route: 065
     Dates: start: 20190506, end: 20190512
  25. TAFINLAR [Suspect]
     Active Substance: DABRAFENIB MESYLATE
     Dosage: 300 MG, OT
     Route: 065
     Dates: start: 20190606, end: 20190610
  26. ESOMEPRAZOLO [Concomitant]
     Active Substance: ESOMEPRAZOLE
     Indication: PROPHYLAXIS
     Dosage: 20 OT, UNK
     Route: 048
     Dates: start: 20100615

REACTIONS (14)
  - Anaemia [Recovered/Resolved]
  - Leukopenia [Recovered/Resolved]
  - Vomiting [Recovered/Resolved]
  - Neutropenia [Recovered/Resolved]
  - Leukopenia [Recovered/Resolved with Sequelae]
  - Leukopenia [Recovered/Resolved]
  - Back pain [Recovering/Resolving]
  - Neutropenia [Recovered/Resolved with Sequelae]
  - Neutropenia [Recovered/Resolved with Sequelae]
  - Asthenia [Recovering/Resolving]
  - Neutropenia [Recovered/Resolved]
  - Anaemia [Recovered/Resolved]
  - Anaemia [Recovered/Resolved]
  - Anaemia [Recovered/Resolved]

NARRATIVE: CASE EVENT DATE: 20190121
